FAERS Safety Report 10954767 (Version 2)
Quarter: 2015Q2

REPORT INFORMATION
  Report Type: Spontaneous
  Country: US (occurrence: US)
  Receive Date: 20150325
  Receipt Date: 20150407
  Transmission Date: 20150821
  Serious: No
  Sender: FDA-Public Use
  Company Number: US-TEVA-548694USA

PATIENT
  Age: 19 Year
  Sex: Female

DRUGS (2)
  1. VITAMIN B [Suspect]
     Active Substance: VITAMIN B
     Indication: NUTRITIONAL SUPPLEMENTATION
     Dates: start: 20150313
  2. QNASL [Suspect]
     Active Substance: BECLOMETHASONE DIPROPIONATE
     Indication: NASAL CONGESTION
     Dates: start: 20150313, end: 20150314

REACTIONS (3)
  - Inflammation [Unknown]
  - Rash [Recovered/Resolved]
  - Rash erythematous [Recovered/Resolved]

NARRATIVE: CASE EVENT DATE: 20150313
